FAERS Safety Report 9361217 (Version 3)
Quarter: 2013Q4

REPORT INFORMATION
  Report Type: Spontaneous
  Country: US (occurrence: US)
  Receive Date: 20130621
  Receipt Date: 20131030
  Transmission Date: 20140711
  Serious: Yes (Death, Other)
  Sender: FDA-Public Use
  Company Number: US-009507513-1306USA009210

PATIENT
  Age: 71 Year
  Sex: Female

DRUGS (1)
  1. TEMODAR [Suspect]
     Dosage: 140 MG, HS FOR 42 DAYS
     Route: 048
     Dates: start: 201305, end: 201305

REACTIONS (1)
  - Nasal cavity cancer [Fatal]
